FAERS Safety Report 15407747 (Version 1)
Quarter: 2018Q3

REPORT INFORMATION
  Report Type: Spontaneous
  Country: US (occurrence: US)
  Receive Date: 20180920
  Receipt Date: 20180920
  Transmission Date: 20181010
  Serious: No
  Sender: FDA-Public Use
  Company Number: US-BAUSCH-BL-2017-025354

PATIENT
  Sex: Male

DRUGS (1)
  1. FLUOROURACIL 5% [Suspect]
     Active Substance: FLUOROURACIL
     Indication: BASAL CELL CARCINOMA
     Dosage: ONCE DAILY, EVERY OTHER DAY
     Route: 061
     Dates: start: 2017

REACTIONS (2)
  - Liquid product physical issue [Unknown]
  - Penile burning sensation [Unknown]

NARRATIVE: CASE EVENT DATE: 2017
